FAERS Safety Report 4781371-3 (Version None)
Quarter: 2005Q3

REPORT INFORMATION
  Report Type: 
  Country: None (occurrence: None)
  Receive Date: 20050928
  Receipt Date: 20050922
  Transmission Date: 20060218
  Serious: Yes (Other)
  Sender: FDA-Public Use
  Company Number: PHBS2005DK14108

PATIENT

DRUGS (1)
  1. RITALIN [Suspect]
     Route: 065

REACTIONS (1)
  - ASTHMA [None]
